FAERS Safety Report 9896624 (Version 1)
Quarter: 2014Q1

REPORT INFORMATION
  Report Type: Spontaneous
  Country: US (occurrence: US)
  Receive Date: 20140213
  Receipt Date: 20140213
  Transmission Date: 20141002
  Serious: No
  Sender: FDA-Public Use
  Company Number: US-BRISTOL-MYERS SQUIBB COMPANY-19920214

PATIENT
  Age: 53 Year
  Sex: Female
  Weight: 95.24 kg

DRUGS (1)
  1. ORENCIA [Suspect]
     Indication: RHEUMATOID ARTHRITIS
     Dosage: LAST INJECTION ON 6NOV13
     Route: 058
     Dates: start: 201309

REACTIONS (2)
  - Incorrect product storage [Unknown]
  - Drug dose omission [Unknown]
